FAERS Safety Report 5181569-9 (Version None)
Quarter: 2006Q4

REPORT INFORMATION
  Report Type: 
  Country: None (occurrence: None)
  Receive Date: 20061220
  Receipt Date: 20060203
  Transmission Date: 20070319
  Serious: Yes (Other)
  Sender: FDA-Public Use
  Company Number: US-GLAXOSMITHKLINE-A0592265A

PATIENT
  Age: 63 Year
  Sex: Female

DRUGS (3)
  1. COMMIT [Suspect]
     Dosage: 2MG TWELVE TIMES PER DAY
  2. NICORETTE [Suspect]
     Dosage: 4MG UNKNOWN
  3. NICORETTE [Suspect]
     Dosage: 2MG UNKNOWN

REACTIONS (4)
  - DRUG ABUSER [None]
  - NAUSEA [None]
  - ORAL DISCOMFORT [None]
  - ORAL PAIN [None]
